FAERS Safety Report 9759707 (Version 1)
Quarter: 2013Q4

REPORT INFORMATION
  Report Type: Spontaneous
  Country: US (occurrence: US)
  Receive Date: 20131216
  Receipt Date: 20131216
  Transmission Date: 20140711
  Serious: No
  Sender: FDA-Public Use
  Company Number: US-GILEAD-2010-0029029

PATIENT
  Age: 76 Year
  Sex: Female
  Weight: 43.09 kg

DRUGS (11)
  1. LETAIRIS [Suspect]
     Indication: PULMONARY ARTERIAL HYPERTENSION
     Route: 048
     Dates: start: 20080710
  2. REVATIO [Concomitant]
  3. PREDNISONE [Concomitant]
  4. OXYGEN [Concomitant]
  5. PRILOSEC [Concomitant]
  6. MOTRIN [Concomitant]
  7. SYNTHROID [Concomitant]
  8. NORVASC [Concomitant]
  9. LOZOL [Concomitant]
  10. VITAMIN D [Concomitant]
  11. TASPRIN [Concomitant]

REACTIONS (1)
  - Skin exfoliation [Unknown]
